FAERS Safety Report 6235044-0 (Version None)
Quarter: 2009Q2

REPORT INFORMATION
  Report Type: 
  Country: None (occurrence: None)
  Receive Date: 20090617
  Receipt Date: 20071030
  Transmission Date: 20091009
  Serious: No
  Sender: FDA-Public Use
  Company Number: 268921

PATIENT
  Age: 39 Year
  Sex: Male

DRUGS (1)
  1. LEVEMIR [Suspect]
     Indication: DIABETES MELLITUS

REACTIONS (1)
  - ARTHRALGIA [None]
